FAERS Safety Report 9190256 (Version 1)
Quarter: 2013Q1

REPORT INFORMATION
  Report Type: Spontaneous
  Country: US (occurrence: US)
  Receive Date: 20130326
  Receipt Date: 20130326
  Transmission Date: 20140127
  Serious: Yes (Other)
  Sender: FDA-Public Use
  Company Number: US-SANOFI-AVENTIS-2013SA029970

PATIENT
  Sex: Male

DRUGS (1)
  1. ALLEGRA [Suspect]
     Indication: PRODUCT USED FOR UNKNOWN INDICATION
     Route: 048
     Dates: start: 20130319

REACTIONS (6)
  - Hypersensitivity [Unknown]
  - Urticaria [Unknown]
  - Sinus disorder [Unknown]
  - Dyspnoea [Unknown]
  - Anxiety [Unknown]
  - Panic attack [Unknown]
